FAERS Safety Report 5934140-2 (Version None)
Quarter: 2008Q4

REPORT INFORMATION
  Report Type: 
  Country: None (occurrence: None)
  Receive Date: 20081029
  Receipt Date: 20081023
  Transmission Date: 20090506
  Serious: Yes (Other)
  Sender: FDA-Public Use
  Company Number: A0753969A

PATIENT
  Age: 59 Year
  Sex: Female

DRUGS (4)
  1. VENTOLIN [Suspect]
     Indication: DRUG USE FOR UNKNOWN INDICATION
     Route: 065
  2. BECLOVENT [Suspect]
     Route: 065
  3. VENTOLIN DISKUS [Suspect]
     Route: 065
  4. VENTOLIN DISKUS [Suspect]
     Route: 065

REACTIONS (9)
  - ANAPHYLACTIC SHOCK [None]
  - APPARENT DEATH [None]
  - CARDIAC ARREST [None]
  - EXPIRED DRUG ADMINISTERED [None]
  - HEART RATE DECREASED [None]
  - HYPERACUSIS [None]
  - LUNG DISORDER [None]
  - TINNITUS [None]
  - VISUAL IMPAIRMENT [None]
